FAERS Safety Report 4954125-2 (Version None)
Quarter: 2006Q1

REPORT INFORMATION
  Report Type: 
  Country: None (occurrence: None)
  Receive Date: 20060327
  Receipt Date: 20060317
  Transmission Date: 20060701
  Serious: Yes (Life-Threatening)
  Sender: FDA-Public Use
  Company Number: 2006JP000651

PATIENT
  Age: 75 Year
  Sex: Male
  Weight: 57.9 kg

DRUGS (15)
  1. CEFAZOLIN [Suspect]
     Indication: DRUG USE FOR UNKNOWN INDICATION
     Route: 042
     Dates: start: 20060302, end: 20060302
  2. GELATIN [Suspect]
     Indication: DRUG USE FOR UNKNOWN INDICATION
     Route: 013
     Dates: start: 20060302, end: 20060302
  3. LIPIODOL [Suspect]
     Indication: DRUG USE FOR UNKNOWN INDICATION
     Route: 013
     Dates: start: 20060302, end: 20060302
  4. FARMORUBICIN [Suspect]
     Indication: DRUG USE FOR UNKNOWN INDICATION
     Route: 013
     Dates: start: 20060302, end: 20060302
  5. XYLOCAINE [Concomitant]
     Dates: start: 20060302, end: 20060302
  6. PANALDINE [Concomitant]
  7. NITOROL [Concomitant]
  8. PROMAC [Concomitant]
  9. ASPIRIN [Concomitant]
  10. BLOPRESS [Concomitant]
  11. URSO [Concomitant]
  12. GLUFAST [Concomitant]
  13. ALPROSTADIL [Concomitant]
     Dates: start: 20060302, end: 20060302
  14. SOSEGON [Concomitant]
     Dates: start: 20060302, end: 20060302
  15. ATARAX [Concomitant]
     Dates: start: 20060302, end: 20060302

REACTIONS (6)
  - ANAPHYLACTIC SHOCK [None]
  - BLOOD PRESSURE DECREASED [None]
  - DEPRESSED LEVEL OF CONSCIOUSNESS [None]
  - HEPATIC ARTERY STENOSIS [None]
  - RESPIRATORY ARREST [None]
  - SKIN DISCOLOURATION [None]
